FAERS Safety Report 6476136-0 (Version None)
Quarter: 2009Q4

REPORT INFORMATION
  Report Type: 
  Country: None (occurrence: None)
  Receive Date: 20091204
  Receipt Date: 20090114
  Transmission Date: 20100525
  Serious: No
  Sender: FDA-Public Use
  Company Number: US-AMGEN-KDL328433

PATIENT
  Sex: Female

DRUGS (3)
  1. ENBREL [Suspect]
     Indication: PSORIASIS
  2. ADVIL [Concomitant]
  3. UNSPECIFIED CONTRACEPTIVE [Concomitant]

REACTIONS (5)
  - DRUG EFFECT DECREASED [None]
  - INJECTION SITE DISCOMFORT [None]
  - INJECTION SITE HAEMORRHAGE [None]
  - PSORIASIS [None]
  - ROAD TRAFFIC ACCIDENT [None]
